FAERS Safety Report 21949129 (Version 1)
Quarter: 2023Q1

REPORT INFORMATION
  Report Type: Spontaneous
  Country: US (occurrence: None)
  Receive Date: 20230202
  Receipt Date: 20230202
  Transmission Date: 20230418
  Serious: No
  Sender: FDA-Public Use
  Company Number: None

PATIENT
  Sex: Female

DRUGS (1)
  1. NOVAREL [Suspect]
     Active Substance: CHORIOGONADOTROPIN ALFA
     Indication: Infertility
     Dosage: OTHER STRENGTH : 5000U/VL;?FREQUENCY : ONCE;?
     Route: 058
     Dates: start: 202301

REACTIONS (2)
  - Human chorionic gonadotropin negative [None]
  - Product quality issue [None]
